FAERS Safety Report 9966130 (Version 1)
Quarter: 2014Q1

REPORT INFORMATION
  Report Type: Report from Study
  Country: US (occurrence: US)
  Receive Date: 20140305
  Receipt Date: 20140305
  Transmission Date: 20141002
  Serious: No
  Sender: FDA-Public Use
  Company Number: US-ABBVIE-13P-163-1120672-00

PATIENT
  Age: 63 Year
  Sex: Female

DRUGS (4)
  1. HUMIRA [Suspect]
     Indication: CROHN^S DISEASE
     Dates: start: 20130514
  2. FAMCICLOVIR [Concomitant]
     Indication: HERPES VIRUS INFECTION
  3. WELCHOL [Concomitant]
     Indication: DIARRHOEA
  4. B 12 [Concomitant]
     Dosage: GIVEN BY PATIENT
     Route: 050

REACTIONS (2)
  - Injection site mass [Recovering/Resolving]
  - Injection site bruising [Recovered/Resolved with Sequelae]
